FAERS Safety Report 11884506 (Version 1)
Quarter: 2015Q4

REPORT INFORMATION
  Report Type: Spontaneous
  Country: US (occurrence: None)
  Receive Date: 20151231
  Receipt Date: 20151231
  Transmission Date: 20160305
  Serious: Yes (Other)
  Sender: FDA-Public Use
  Company Number: None

PATIENT
  Age: 52 Year
  Sex: Female

DRUGS (1)
  1. LIDOCAINE 5% PATCH 5% MYLAN [Suspect]
     Active Substance: LIDOCAINE
     Indication: CANCER PAIN
     Dosage: APPLIED AS MEDICATED PATCH TO SKIN; 1 PATCH EVERY 12 HOURS
     Route: 061
     Dates: start: 20151224, end: 20151227

REACTIONS (3)
  - Product substitution issue [None]
  - Drug ineffective [None]
  - Product physical consistency issue [None]

NARRATIVE: CASE EVENT DATE: 20151224
